FAERS Safety Report 17471934 (Version 3)
Quarter: 2020Q4

REPORT INFORMATION
  Report Type: Report from Study
  Country: JP (occurrence: JP)
  Receive Date: 20200228
  Receipt Date: 20201125
  Transmission Date: 20210113
  Serious: Yes (Hospitalization, Other)
  Sender: FDA-Public Use
  Company Number: JP-GLAXOSMITHKLINE-JP2020JPN033957

PATIENT
  Age: 6 Decade
  Sex: Male
  Weight: 63 kg

DRUGS (30)
  1. IMURAN [Suspect]
     Active Substance: AZATHIOPRINE
     Indication: EOSINOPHILIC GRANULOMATOSIS WITH POLYANGIITIS
  2. PREDNISOLONE. [Suspect]
     Active Substance: PREDNISOLONE
     Dosage: 3 MG, 1D
     Dates: start: 20191010
  3. HARNAL D TABLETS [Concomitant]
     Dosage: UNK
  4. JUVELA OINTMENT [Concomitant]
     Dosage: UNK
  5. MEPOLIZUMAB [Suspect]
     Active Substance: MEPOLIZUMAB
     Dosage: 300 MG
     Route: 058
     Dates: start: 20190906, end: 20190906
  6. IMURAN [Suspect]
     Active Substance: AZATHIOPRINE
     Indication: PACHYMENINGITIS
     Dosage: 50 MG, QOD
  7. PREDNISOLONE. [Suspect]
     Active Substance: PREDNISOLONE
     Indication: EOSINOPHILIC GRANULOMATOSIS WITH POLYANGIITIS
     Dosage: 8 MG, 1D
     Dates: start: 20190801, end: 20190925
  8. PREDNISOLONE. [Suspect]
     Active Substance: PREDNISOLONE
     Dosage: UNK
     Dates: start: 201912
  9. NEXIUM [Concomitant]
     Active Substance: ESOMEPRAZOLE MAGNESIUM
     Indication: GASTRITIS PROPHYLAXIS
     Dosage: UNK
  10. LYRICA OD TABLETS [Concomitant]
     Indication: EOSINOPHILIC GRANULOMATOSIS WITH POLYANGIITIS
     Dosage: UNK
  11. MYSLEE TABLETS [Concomitant]
     Dosage: UNK
  12. HIRUDOID SOFT OINTMENT [Concomitant]
     Dosage: UNK
  13. PRALIA SUBCUTANEOUS INJECTION [Concomitant]
  14. MEPOLIZUMAB [Suspect]
     Active Substance: MEPOLIZUMAB
     Indication: EOSINOPHILIC GRANULOMATOSIS WITH POLYANGIITIS
     Dosage: 300 MG
     Route: 058
     Dates: start: 20190731, end: 20190731
  15. MEPOLIZUMAB [Suspect]
     Active Substance: MEPOLIZUMAB
     Dosage: 300 MG
     Route: 058
     Dates: start: 20191009, end: 20191009
  16. PREDNISOLONE. [Suspect]
     Active Substance: PREDNISOLONE
     Indication: PACHYMENINGITIS
     Dosage: 3 MG, 1D
     Dates: end: 20190731
  17. PREDONINE [Concomitant]
     Active Substance: PREDNISOLONE
     Dosage: 5 MG, 1D
     Dates: start: 20191010
  18. TRAMCET COMBINATION TABLETS [Concomitant]
     Indication: EOSINOPHILIC GRANULOMATOSIS WITH POLYANGIITIS
     Dosage: UNK
  19. SELTOUCH PAP [Concomitant]
     Dosage: UNK
  20. SUMILU STICK [Concomitant]
     Active Substance: FELBINAC
  21. MAALOX GRANULES FOR SUSPENSION (ALUMINIUM HYDROXIDE GEL, DRIED + MAGNE [Concomitant]
     Indication: GASTRITIS PROPHYLAXIS
  22. HEMOPORISON OINTMENT [Concomitant]
  23. MEPOLIZUMAB [Suspect]
     Active Substance: MEPOLIZUMAB
     Dosage: 300 MG
     Route: 058
     Dates: start: 20191211, end: 20191211
  24. CONIEL TABLETS (BENIDIPINE HYDROCHLORIDE) [Concomitant]
     Dosage: UNK
  25. PREDNISOLONE. [Suspect]
     Active Substance: PREDNISOLONE
     Dosage: 8 MG
     Dates: end: 201912
  26. PREDONINE [Concomitant]
     Active Substance: PREDNISOLONE
     Indication: EOSINOPHILIC GRANULOMATOSIS WITH POLYANGIITIS
     Dosage: 5 MG, 1D
     Dates: end: 20190731
  27. EDIROL CAPSULE [Concomitant]
     Dosage: UNK
  28. BAKTAR COMBINATION GRANULES [Concomitant]
     Indication: INFECTION PROPHYLAXIS
     Dosage: UNK
  29. TEARBALANCE OPHTHALMIC SOLUTION [Concomitant]
  30. PREDONINE [Concomitant]
     Active Substance: PREDNISOLONE
     Dosage: 10 MG, 1D
     Dates: start: 20190926, end: 20191009

REACTIONS (5)
  - Condition aggravated [Recovering/Resolving]
  - Drug ineffective [Unknown]
  - Pneumonia [Recovering/Resolving]
  - Pachymeningitis [Recovering/Resolving]
  - Inappropriate schedule of product administration [Unknown]

NARRATIVE: CASE EVENT DATE: 20190810
